FAERS Safety Report 9463845 (Version 1)
Quarter: 2013Q3

REPORT INFORMATION
  Report Type: Spontaneous
  Country: AU (occurrence: AU)
  Receive Date: 20130819
  Receipt Date: 20130819
  Transmission Date: 20140515
  Serious: Yes (Other)
  Sender: FDA-Public Use
  Company Number: AU-PFIZER INC-2013237900

PATIENT
  Age: 4 Decade
  Sex: Male

DRUGS (1)
  1. CHAMPIX [Suspect]
     Dosage: UNK

REACTIONS (5)
  - Suicidal behaviour [Recovering/Resolving]
  - Depressed mood [Recovering/Resolving]
  - Anxiety [Recovering/Resolving]
  - Crying [Recovering/Resolving]
  - Insomnia [Recovering/Resolving]
